FAERS Safety Report 21540100 (Version 1)
Quarter: 2022Q4

REPORT INFORMATION
  Report Type: Spontaneous
  Country: NL (occurrence: None)
  Receive Date: 20221102
  Receipt Date: 20221102
  Transmission Date: 20230112
  Serious: Yes (Hospitalization)
  Sender: FDA-Public Use
  Company Number: None

PATIENT
  Sex: Female
  Weight: 55 kg

DRUGS (3)
  1. OCRELIZUMAB [Suspect]
     Active Substance: OCRELIZUMAB
     Indication: Relapsing-remitting multiple sclerosis
     Dosage: 600 MG 1X PER DAY; SECOND GIFT OCTOBER 2021 (600MG), THIRD GIFT (600MG) APRIL 2022
     Route: 065
     Dates: start: 202210, end: 20221013
  2. OCRELIZUMAB [Suspect]
     Active Substance: OCRELIZUMAB
     Dosage: EERSTE GIFT 300 MG
     Route: 065
     Dates: start: 202104
  3. ETHINYL ESTRADIOL\LEVONORGESTREL [Concomitant]
     Active Substance: ETHINYL ESTRADIOL\LEVONORGESTREL
     Dosage: TABLET, 30/150 UG (MICROGRAM)

REACTIONS (1)
  - Colitis [Recovering/Resolving]
